FAERS Safety Report 7636801-6 (Version None)
Quarter: 2011Q3

REPORT INFORMATION
  Report Type: 
  Country: None (occurrence: None)
  Receive Date: 20110726
  Receipt Date: 20110717
  Transmission Date: 20111222
  Serious: Yes (Other)
  Sender: FDA-Public Use
  Company Number: US-ASTRAZENECA-2011SE43234

PATIENT
  Age: 687 Month
  Sex: Male
  Weight: 81.6 kg

DRUGS (6)
  1. VITAMIN TAB [Concomitant]
  2. VICODIN [Concomitant]
     Indication: PAIN
  3. MINERAL TAB [Concomitant]
  4. SEROQUEL [Suspect]
     Route: 048
     Dates: end: 20101109
  5. SEROQUEL [Suspect]
     Route: 048
     Dates: start: 20101101
  6. VITAMIN D [Concomitant]

REACTIONS (2)
  - AMNESIA [None]
  - ADVERSE DRUG REACTION [None]
